FAERS Safety Report 13702464 (Version 1)
Quarter: 2017Q2

REPORT INFORMATION
  Report Type: Report from Study
  Country: US (occurrence: US)
  Receive Date: 20170629
  Receipt Date: 20170629
  Transmission Date: 20170830
  Serious: No
  Sender: FDA-Public Use
  Company Number: US-IPSEN BIOPHARMACEUTICALS, INC.-2016-06223

PATIENT
  Age: 14 Year
  Sex: Male
  Weight: 28.9 kg

DRUGS (3)
  1. INCRELEX [Suspect]
     Active Substance: MECASERMIN
     Indication: PRODUCT USE IN UNAPPROVED INDICATION
  2. INCRELEX [Suspect]
     Active Substance: MECASERMIN
     Indication: BODY HEIGHT BELOW NORMAL
     Route: 058
     Dates: start: 20160715
  3. CYPROHEPTADINE. [Concomitant]
     Active Substance: CYPROHEPTADINE

REACTIONS (3)
  - Abdominal pain [Recovered/Resolved]
  - Anxiety [Unknown]
  - Nausea [Recovered/Resolved]

NARRATIVE: CASE EVENT DATE: 20160718
